FAERS Safety Report 8944469 (Version 1)
Quarter: 2012Q4

REPORT INFORMATION
  Report Type: 
  Country: US (occurrence: US)
  Receive Date: 20121204
  Receipt Date: 20121204
  Transmission Date: 20130627
  Serious: No
  Sender: FDA-Public Use
  Company Number: US-AMGEN-USASP2012064128

PATIENT
  Age: 58 Year
  Sex: Female

DRUGS (3)
  1. ENBREL [Suspect]
     Indication: PSORIASIS
     Dosage: 50 mg, 2 times/wk
     Route: 058
     Dates: start: 200505
  2. DERMA SMOOTH FS [Concomitant]
     Dosage: UNK
     Dates: start: 200801
  3. TACLONEX [Concomitant]
     Dosage: UNK
     Dates: start: 200801

REACTIONS (2)
  - Pain in extremity [Unknown]
  - Psoriasis [Not Recovered/Not Resolved]
